FAERS Safety Report 9444314 (Version 1)
Quarter: 2013Q3

REPORT INFORMATION
  Report Type: Spontaneous
  Country: US (occurrence: US)
  Receive Date: 20130807
  Receipt Date: 20130807
  Transmission Date: 20140515
  Serious: Yes (Other)
  Sender: FDA-Public Use
  Company Number: US-JNJCP-30000172607

PATIENT
  Sex: Female

DRUGS (5)
  1. NEUTROGENA PRODUCTS [Suspect]
     Indication: PROPHYLAXIS
     Route: 061
     Dates: start: 2013
  2. NO DRUG NAME [Concomitant]
  3. NO DRUG NAME [Concomitant]
  4. NO DRUG NAME [Concomitant]
  5. NO DRUG NAME [Concomitant]

REACTIONS (1)
  - Application site urticaria [Unknown]
